FAERS Safety Report 20035637 (Version 1)
Quarter: 2021Q4

REPORT INFORMATION
  Report Type: Spontaneous
  Country: US (occurrence: US)
  Receive Date: 20211104
  Receipt Date: 20211104
  Transmission Date: 20220303
  Serious: No
  Sender: FDA-Public Use
  Company Number: US-PFIZER INC-202101326827

PATIENT
  Age: 73 Year

DRUGS (1)
  1. ESTRADIOL [Suspect]
     Active Substance: ESTRADIOL
     Dosage: UNK

REACTIONS (4)
  - Illness [Unknown]
  - Breast enlargement [Unknown]
  - Pain [Unknown]
  - Fatigue [Unknown]
